FAERS Safety Report 5083584-2 (Version None)
Quarter: 2006Q3

REPORT INFORMATION
  Report Type: 
  Country: None (occurrence: None)
  Receive Date: 20060818
  Receipt Date: 20060718
  Transmission Date: 20061208
  Serious: Yes (Disabling, Congenital Anomaly)
  Sender: FDA-Public Use
  Company Number: FR-GLAXOSMITHKLINE-B0409922B

PATIENT
  Age: 1 Day
  Sex: Female
  Weight: 2.6 kg

DRUGS (3)
  1. AVANDIA [Suspect]
     Indication: DRUG EXPOSURE DURING PREGNANCY
     Dosage: 4MG PER DAY
     Dates: start: 20050902, end: 20051120
  2. LEVOTHYROXINE SODIUM [Concomitant]
     Indication: DRUG EXPOSURE DURING PREGNANCY
  3. TARDYFERON B9 [Concomitant]
     Indication: DRUG EXPOSURE DURING PREGNANCY
     Dosage: 1UNIT PER DAY

REACTIONS (4)
  - CONGENITAL NAIL DISORDER [None]
  - DRUG EXPOSURE DURING PREGNANCY [None]
  - MULTIPLE CONGENITAL ABNORMALITIES [None]
  - TOE DEFORMITY [None]
